FAERS Safety Report 6542500-4 (Version None)
Quarter: 2010Q1

REPORT INFORMATION
  Report Type: 
  Country: None (occurrence: None)
  Receive Date: 20100119
  Receipt Date: 20100115
  Transmission Date: 20100710
  Serious: Yes (Hospitalization)
  Sender: FDA-Public Use
  Company Number: FR-WYE-G05348410

PATIENT
  Sex: Male
  Weight: 14.3 kg

DRUGS (3)
  1. ADVIL LIQUI-GELS [Suspect]
     Indication: NASOPHARYNGITIS
     Route: 048
     Dates: start: 20091120, end: 20091122
  2. ADVIL LIQUI-GELS [Suspect]
     Indication: PYREXIA
  3. PNEUMOREL [Suspect]
     Indication: NASOPHARYNGITIS
     Dosage: UNKNOWN
     Route: 048
     Dates: start: 20091120, end: 20091101

REACTIONS (10)
  - CONDITION AGGRAVATED [None]
  - DIARRHOEA [None]
  - INFLUENZA [None]
  - NASOPHARYNGITIS [None]
  - PLEURISY [None]
  - PNEUMOCOCCAL INFECTION [None]
  - PNEUMONIA [None]
  - POSTURE ABNORMAL [None]
  - STREPTOCOCCAL INFECTION [None]
  - VOMITING [None]
